FAERS Safety Report 9781919 (Version 3)
Quarter: 2014Q4

REPORT INFORMATION
  Report Type: Spontaneous
  Country: US (occurrence: US)
  Receive Date: 20131225
  Receipt Date: 20141002
  Transmission Date: 20150529
  Serious: No
  Sender: FDA-Public Use
  Company Number: US-B.I. PHARMACEUTICALS,INC./RIDGEFIELD-2013-BI-42060BP

PATIENT
  Sex: Male
  Weight: 86.36 kg

DRUGS (1)
  1. COMBIVENT [Suspect]
     Active Substance: ALBUTEROL SULFATE\IPRATROPIUM BROMIDE
     Indication: CHRONIC OBSTRUCTIVE PULMONARY DISEASE
     Dosage: DOSE PER APPLICATION: 20 MCG/ 100 MCG, DAILY DOSE: 160 MCG/ 800 MCG
     Route: 055
     Dates: start: 201306

REACTIONS (4)
  - Prescribed overdose [Not Recovered/Not Resolved]
  - Product quality issue [Recovered/Resolved]
  - Drug ineffective [Unknown]
  - Pulmonary congestion [Not Recovered/Not Resolved]

NARRATIVE: CASE EVENT DATE: 2013
